FAERS Safety Report 5840917-4 (Version None)
Quarter: 2008Q3

REPORT INFORMATION
  Report Type: 
  Country: None (occurrence: None)
  Receive Date: 20080811
  Receipt Date: 20080730
  Transmission Date: 20090109
  Serious: Yes (Death, Hospitalization)
  Sender: FDA-Public Use
  Company Number: JP-PFIZER INC-2008063848

PATIENT
  Age: 19 Year
  Sex: Female

DRUGS (7)
  1. SULPERAZON [Suspect]
     Indication: PYREXIA
     Route: 042
  2. PONSTEL [Concomitant]
     Route: 048
  3. TRANSAMIN [Concomitant]
  4. MUCOSTA [Concomitant]
     Route: 048
  5. CELESTAMINE TAB [Concomitant]
     Route: 048
  6. CLARITHROMYCIN [Concomitant]
     Route: 048
  7. CIPROFLOXACIN HCL [Concomitant]

REACTIONS (1)
  - HEPATITIS FULMINANT [None]
